FAERS Safety Report 4741794-5 (Version None)
Quarter: 2005Q3

REPORT INFORMATION
  Report Type: 
  Country: None (occurrence: None)
  Receive Date: 20050810
  Receipt Date: 20050531
  Transmission Date: 20060218
  Serious: Yes (Other)
  Sender: FDA-Public Use
  Company Number: AU-MERCK-0506AUS00099

PATIENT
  Age: 63 Year
  Sex: Female

DRUGS (1)
  1. VIOXX [Suspect]
     Route: 048
     Dates: start: 20030429, end: 20040601

REACTIONS (1)
  - CEREBROVASCULAR ACCIDENT [None]
